FAERS Safety Report 8394522-9 (Version None)
Quarter: 2012Q2

REPORT INFORMATION
  Report Type: 
  Country: None (occurrence: None)
  Receive Date: 20120530
  Receipt Date: 20120521
  Transmission Date: 20120825
  Serious: Yes (Hospitalization)
  Sender: FDA-Public Use
  Company Number: FR-VERTEX PHARMACEUTICALS INC.-000000000000000430

PATIENT
  Sex: Male
  Weight: 57 kg

DRUGS (6)
  1. COPEGUS [Concomitant]
     Route: 048
     Dates: start: 20111123
  2. TELAPREVIR [Suspect]
     Indication: HEPATITIS C
     Dosage: DOSAGE FORM: TABLET
     Route: 048
     Dates: start: 20110825, end: 20111027
  3. COPEGUS [Concomitant]
     Indication: HEPATITIS C
     Route: 048
     Dates: start: 20110825, end: 20111018
  4. COPEGUS [Concomitant]
     Route: 048
     Dates: start: 20111019, end: 20111031
  5. PEGASYS [Concomitant]
     Indication: HEPATITIS C
     Route: 058
     Dates: start: 20110825
  6. COPEGUS [Concomitant]
     Route: 048
     Dates: start: 20111101, end: 20111122

REACTIONS (2)
  - HAEMOLYTIC ANAEMIA [None]
  - ANAEMIA [None]
